FAERS Safety Report 16653292 (Version 1)
Quarter: 2019Q3

REPORT INFORMATION
  Report Type: Spontaneous
  Country: CN (occurrence: CN)
  Receive Date: 20190731
  Receipt Date: 20190731
  Transmission Date: 20191004
  Serious: Yes (Hospitalization)
  Sender: FDA-Public Use
  Company Number: CN-ELI_LILLY_AND_COMPANY-CN201907014402

PATIENT
  Sex: Female
  Weight: 62.5 kg

DRUGS (3)
  1. ACARBOSE. [Concomitant]
     Active Substance: ACARBOSE
     Indication: DIABETES MELLITUS
     Dosage: UNK UNK, TID
     Route: 048
     Dates: start: 2011
  2. HUMULIN R [Suspect]
     Active Substance: INSULIN HUMAN
     Indication: DIABETES MELLITUS
     Dosage: 18 INTERNATIONAL UNIT, TID
     Route: 058
     Dates: start: 2007
  3. HUMULIN N [Suspect]
     Active Substance: INSULIN HUMAN
     Indication: DIABETES MELLITUS
     Dosage: 16 INTERNATIONAL UNIT, DAILY
     Route: 058
     Dates: start: 2007

REACTIONS (4)
  - Cerebral infarction [Not Recovered/Not Resolved]
  - Diabetic complication [Not Recovered/Not Resolved]
  - Therapeutic product effect incomplete [Unknown]
  - Blood glucose increased [Not Recovered/Not Resolved]
